FAERS Safety Report 25596761 (Version 1)
Quarter: 2025Q3

REPORT INFORMATION
  Report Type: Report from Study
  Country: CN (occurrence: CN)
  Receive Date: 20250723
  Receipt Date: 20250723
  Transmission Date: 20251020
  Serious: Yes (Other)
  Sender: ROCHE
  Company Number: CN-ROCHE-10000337191

PATIENT
  Age: 52 Year
  Sex: Male

DRUGS (1)
  1. BEVACIZUMAB [Suspect]
     Active Substance: BEVACIZUMAB
     Indication: Non-small cell lung cancer
     Dosage: 500 MG/TIMES 3 WEEK/TIMES
     Route: 042
     Dates: start: 20170413

REACTIONS (2)
  - Chest pain [Recovered/Resolved]
  - Acute coronary syndrome [Recovered/Resolved]
